FAERS Safety Report 9081367 (Version 1)
Quarter: 2013Q1

REPORT INFORMATION
  Report Type: Report from Study
  Country: US (occurrence: US)
  Receive Date: 20130130
  Receipt Date: 20130130
  Transmission Date: 20140127
  Serious: No
  Sender: FDA-Public Use
  Company Number: US-ABBOTT-12P-163-0954806-00

PATIENT
  Age: 65 Year
  Sex: Male
  Weight: 96.25 kg

DRUGS (4)
  1. HUMIRA 40 MG/0.8 ML PEN [Suspect]
     Indication: CROHN^S DISEASE
     Dosage: ONCE
     Dates: start: 20120515, end: 20120515
  2. HUMIRA 40 MG/0.8 ML PEN [Suspect]
     Dosage: ONCE
     Dates: start: 20120704, end: 20120704
  3. MOBIC [Concomitant]
     Indication: CROHN^S DISEASE
  4. PREDNISONE [Concomitant]
     Indication: CROHN^S DISEASE

REACTIONS (2)
  - Rash papular [Not Recovered/Not Resolved]
  - Rash pruritic [Recovered/Resolved]
